FAERS Safety Report 18209624 (Version 1)
Quarter: 2020Q3

REPORT INFORMATION
  Report Type: Spontaneous
  Country: SI (occurrence: SI)
  Receive Date: 20200828
  Receipt Date: 20200828
  Transmission Date: 20201103
  Serious: Yes (Other)
  Sender: FDA-Public Use
  Company Number: SI-GILEAD-2020-0491518

PATIENT
  Age: 39 Year
  Sex: Male
  Weight: 80 kg

DRUGS (3)
  1. DARUNAVIR;RITONAVIR [Concomitant]
     Active Substance: DARUNAVIR\RITONAVIR
  2. DOLUTEGRAVIR [Concomitant]
     Active Substance: DOLUTEGRAVIR
  3. VIREAD [Suspect]
     Active Substance: TENOFOVIR DISOPROXIL FUMARATE
     Indication: HIV INFECTION
     Dosage: UNK
     Route: 065
     Dates: start: 201611, end: 20190808

REACTIONS (3)
  - Drug ineffective [Not Recovered/Not Resolved]
  - Drug abuse [Unknown]
  - Treatment noncompliance [Unknown]

NARRATIVE: CASE EVENT DATE: 20180215
